FAERS Safety Report 12139438 (Version 2)
Quarter: 2016Q1

REPORT INFORMATION
  Report Type: Spontaneous
  Country: US (occurrence: US)
  Receive Date: 20160303
  Receipt Date: 20160329
  Transmission Date: 20160526
  Serious: Yes (Hospitalization)
  Sender: FDA-Public Use
  Company Number: US-BEH-2016059295

PATIENT
  Sex: Female
  Weight: 60 kg

DRUGS (27)
  1. LMX [Concomitant]
     Active Substance: LIDOCAINE
  2. ZOFRAN [Concomitant]
     Active Substance: ONDANSETRON HYDROCHLORIDE
  3. IMODIUM [Concomitant]
     Active Substance: LOPERAMIDE HYDROCHLORIDE
  4. HIZENTRA [Suspect]
     Active Substance: HUMAN IMMUNOGLOBULIN G
     Indication: IMMUNODEFICIENCY COMMON VARIABLE
     Dosage: 2 GM 10 ML VIALS
     Route: 058
     Dates: start: 20140217
  5. LIDOCAINE. [Concomitant]
     Active Substance: LIDOCAINE
  6. POTASSIUM [Concomitant]
     Active Substance: POTASSIUM
  7. BUMETANIDE. [Concomitant]
     Active Substance: BUMETANIDE
  8. CULTURELLE [Concomitant]
     Active Substance: LACTOBACILLUS RHAMNOSUS
  9. OXYCODONE [Concomitant]
     Active Substance: OXYCODONE
  10. FLUMADINE [Concomitant]
     Active Substance: RIMANTADINE HYDROCHLORIDE
  11. LEVSIN [Concomitant]
     Active Substance: HYOSCYAMINE SULFATE
  12. GABAPENTIN. [Concomitant]
     Active Substance: GABAPENTIN
  13. DICYCLOMINE [Concomitant]
     Active Substance: DICYCLOMINE HYDROCHLORIDE
  14. METOPROLOL. [Concomitant]
     Active Substance: METOPROLOL
  15. LOMOTIL [Concomitant]
     Active Substance: ATROPINE SULFATE\DIPHENOXYLATE HYDROCHLORIDE
  16. VOLTAREN [Concomitant]
     Active Substance: DICLOFENAC SODIUM
  17. ARAVA [Concomitant]
     Active Substance: LEFLUNOMIDE
  18. MAXAIR [Concomitant]
     Active Substance: PIRBUTEROL ACETATE
  19. MAPAP [Concomitant]
     Active Substance: ACETAMINOPHEN
  20. ACETAMINOPHEN. [Concomitant]
     Active Substance: ACETAMINOPHEN
  21. DIPHENHYDRAMINE. [Concomitant]
     Active Substance: DIPHENHYDRAMINE
  22. EPIPEN [Concomitant]
     Active Substance: EPINEPHRINE
  23. DURAGESIC [Concomitant]
     Active Substance: FENTANYL
  24. HYDROCODONE [Concomitant]
     Active Substance: HYDROCODONE
  25. ADVAIR HFA [Concomitant]
     Active Substance: FLUTICASONE PROPIONATE\SALMETEROL XINAFOATE
  26. DUONEB [Concomitant]
     Active Substance: ALBUTEROL SULFATE\IPRATROPIUM BROMIDE
  27. WELLBUTRIN [Concomitant]
     Active Substance: BUPROPION HYDROCHLORIDE

REACTIONS (3)
  - Dehydration [Recovered/Resolved]
  - Gastritis [Recovered/Resolved]
  - Urinary tract infection [Recovered/Resolved]
